FAERS Safety Report 8536723 (Version 3)
Quarter: 2013Q3

REPORT INFORMATION
  Report Type: Report from Study
  Country: MX (occurrence: MX)
  Receive Date: 20120430
  Receipt Date: 20130903
  Transmission Date: 20140515
  Serious: Yes (Other)
  Sender: FDA-Public Use
  Company Number: PHHY2012MX034650

PATIENT
  Age: 83 Year
  Sex: Male

DRUGS (3)
  1. ONBREZ [Suspect]
     Indication: CHRONIC OBSTRUCTIVE PULMONARY DISEASE
     Dosage: 150 UG, QD
     Dates: start: 20110919
  2. NOOTROPIL [Concomitant]
     Indication: CEREBRAL DISORDER
     Dosage: 800 MG, UNK
  3. TAFIROL [Concomitant]
     Indication: MEMORY IMPAIRMENT
     Dosage: UNK
     Dates: start: 2011

REACTIONS (3)
  - Osteoarthropathy [Unknown]
  - Deafness [Not Recovered/Not Resolved]
  - Concomitant disease aggravated [Not Recovered/Not Resolved]
